FAERS Safety Report 8451110-3 (Version None)
Quarter: 2012Q2

REPORT INFORMATION
  Report Type: 
  Country: None (occurrence: None)
  Receive Date: 20120620
  Receipt Date: 20120607
  Transmission Date: 20120825
  Serious: Yes (Other)
  Sender: FDA-Public Use
  Company Number: US-JNJFOC-20111205816

PATIENT
  Sex: Female
  Weight: 117.48 kg

DRUGS (7)
  1. SEASONALE [Suspect]
     Indication: PRODUCT USED FOR UNKNOWN INDICATION
     Route: 048
  2. STELARA [Suspect]
     Route: 058
     Dates: start: 20101111
  3. STELARA [Suspect]
     Route: 058
     Dates: start: 20030722, end: 20040719
  4. INH [Concomitant]
     Route: 065
  5. ASPIRIN [Concomitant]
     Route: 065
  6. STELARA [Suspect]
     Route: 058
     Dates: start: 20100719
  7. STELARA [Suspect]
     Indication: PSORIASIS
     Route: 058

REACTIONS (2)
  - PULMONARY EMBOLISM [None]
  - CARDIOLIPIN ANTIBODY POSITIVE [None]
